FAERS Safety Report 9648977 (Version 1)
Quarter: 2013Q4

REPORT INFORMATION
  Report Type: Spontaneous
  Country: PT (occurrence: PT)
  Receive Date: 20131028
  Receipt Date: 20131028
  Transmission Date: 20140711
  Serious: Yes (Life-Threatening)
  Sender: FDA-Public Use
  Company Number: PT-ACTAVIS-2013-19621

PATIENT
  Sex: 0

DRUGS (16)
  1. PACLITAXEL ACTAVIS [Suspect]
     Indication: GASTRIC CANCER
     Dosage: 123 MG, DAILY
     Route: 017
     Dates: start: 20130913, end: 20130913
  2. TRANSTEC [Concomitant]
     Indication: PRODUCT USED FOR UNKNOWN INDICATION
     Dosage: 1 DF, Q4H, 52.5 MICROGRAM/H
     Route: 003
  3. OMEPRAZOL                          /00661201/ [Concomitant]
     Indication: PRODUCT USED FOR UNKNOWN INDICATION
     Dosage: 20 MG, DAILY
     Route: 048
  4. LORENIN [Concomitant]
     Indication: PRODUCT USED FOR UNKNOWN INDICATION
     Dosage: 1 DF, DAILY
     Route: 065
  5. METOCLOPRAMIDA [Concomitant]
     Indication: GASTRIC CANCER
     Dosage: 3 DF, DAILY
     Route: 048
  6. LIORESAL [Concomitant]
     Indication: GASTRIC CANCER
     Dosage: 3 DF, DAILY
     Route: 048
  7. NORTEROL [Concomitant]
     Indication: GASTRIC CANCER
     Dosage: 1 DF, DAILY
     Route: 048
  8. IMPORTAL [Concomitant]
     Indication: GASTRIC CANCER
     Dosage: 4 DF, DAILY
     Route: 065
  9. LARGACTIL                          /00011901/ [Concomitant]
     Indication: GASTRIC CANCER
     Dosage: 3 DF, DAILY
     Route: 048
  10. PARACETAMOL [Concomitant]
     Indication: PRODUCT USED FOR UNKNOWN INDICATION
     Dosage: 4 DF, DAILY
     Route: 065
  11. INNOHEP [Concomitant]
     Indication: PRODUCT USED FOR UNKNOWN INDICATION
     Dosage: 1 DF, DAILY
     Route: 065
  12. FUROSEMIDA                         /00032601/ [Concomitant]
     Indication: PRODUCT USED FOR UNKNOWN INDICATION
     Dosage: 1 DF, DAILY
     Route: 065
  13. ONDANSETROM [Concomitant]
     Indication: PROPHYLAXIS AGAINST MOTION SICKNESS
     Dosage: 8 MG, DAILY
     Route: 042
     Dates: start: 20130913, end: 20130913
  14. DEXAMETASONA                       /00016001/ [Concomitant]
     Indication: PROPHYLAXIS AGAINST MOTION SICKNESS
     Dosage: 16 MG, DAILY
     Route: 042
     Dates: start: 20130913, end: 20130913
  15. TAVIST                             /00137202/ [Concomitant]
     Indication: ANTIALLERGIC THERAPY
     Dosage: 2 MG, DAILY
     Route: 042
     Dates: start: 20130913, end: 20130913
  16. RANITIDINA [Concomitant]
     Indication: PROPHYLAXIS AGAINST GASTROINTESTINAL ULCER
     Dosage: 50 MG, DAILY
     Route: 042
     Dates: start: 20130913, end: 20130913

REACTIONS (4)
  - Cyanosis [Recovered/Resolved]
  - Eye disorder [Recovered/Resolved]
  - Tremor [Recovered/Resolved]
  - Wheezing [Recovered/Resolved]
